FAERS Safety Report 7392973-2 (Version None)
Quarter: 2011Q2

REPORT INFORMATION
  Report Type: 
  Country: None (occurrence: None)
  Receive Date: 20110404
  Receipt Date: 20110331
  Transmission Date: 20111010
  Serious: Yes (Death, Other)
  Sender: FDA-Public Use
  Company Number: VE-PFIZER INC-2011065835

PATIENT
  Age: 69 Year
  Sex: Male
  Weight: 110 kg

DRUGS (1)
  1. LIPITOR [Suspect]
     Indication: HYPERCHOLESTEROLAEMIA
     Dosage: 20 MG, 1X/DAY
     Route: 048

REACTIONS (5)
  - METASTASES TO LIVER [None]
  - COLOSTOMY [None]
  - GASTROINTESTINAL INJURY [None]
  - POST PROCEDURAL HAEMORRHAGE [None]
  - NEOPLASM MALIGNANT [None]
